FAERS Safety Report 7993442-9 (Version None)
Quarter: 2011Q4

REPORT INFORMATION
  Report Type: 
  Country: None (occurrence: None)
  Receive Date: 20111219
  Receipt Date: 20110921
  Transmission Date: 20120403
  Serious: No
  Sender: FDA-Public Use
  Company Number: US-ASTRAZENECA-2011SE21224

PATIENT
  Age: 61 Year
  Sex: Female
  Weight: 72.1 kg

DRUGS (12)
  1. CRESTOR [Suspect]
     Indication: HEPATIC STEATOSIS
     Route: 048
     Dates: end: 20100916
  2. FISH OIL [Concomitant]
  3. VITAMIN D [Concomitant]
  4. CRESTOR [Suspect]
     Route: 048
     Dates: start: 20110523
  5. ASPIRIN [Concomitant]
  6. EVISTA [Concomitant]
  7. MELOXICAM [Concomitant]
  8. CRESTOR [Suspect]
     Indication: BLOOD CHOLESTEROL INCREASED
     Route: 048
     Dates: end: 20100916
  9. OMEPRAZOLE [Concomitant]
  10. PAROXETINE HCL [Concomitant]
  11. ULTRAM ER [Concomitant]
  12. CRESTOR [Suspect]
     Route: 048
     Dates: start: 20110523

REACTIONS (3)
  - COELIAC DISEASE [None]
  - MYOSITIS [None]
  - MYALGIA [None]
